FAERS Safety Report 11147026 (Version 1)
Quarter: 2015Q2

REPORT INFORMATION
  Report Type: Spontaneous
  Country: US (occurrence: US)
  Receive Date: 20150528
  Receipt Date: 20150528
  Transmission Date: 20150821
  Serious: No
  Sender: FDA-Public Use
  Company Number: US-PURDUE-USA-2014-0115247

PATIENT
  Age: 55 Year
  Sex: Male
  Weight: 86.62 kg

DRUGS (2)
  1. HYDROMORPHONE HCL (SIMILAR TO 19-892) [Concomitant]
     Active Substance: HYDROMORPHONE HYDROCHLORIDE
     Indication: BREAKTHROUGH PAIN
     Dosage: 8 MG, TID
  2. MS CONTIN [Suspect]
     Active Substance: MORPHINE SULFATE

REACTIONS (2)
  - Pain [Unknown]
  - Breakthrough pain [Unknown]
